FAERS Safety Report 9765275 (Version 1)
Quarter: 2013Q4

REPORT INFORMATION
  Report Type: Spontaneous
  Country: US (occurrence: US)
  Receive Date: 20131217
  Receipt Date: 20131217
  Transmission Date: 20140711
  Serious: No
  Sender: FDA-Public Use
  Company Number: US-GLAXOSMITHKLINE-A1005076A

PATIENT
  Sex: 0

DRUGS (1)
  1. VOTRIENT [Suspect]
     Dosage: 800MG PER DAY

REACTIONS (2)
  - Neutropenia [Unknown]
  - Thrombocytopenia [Unknown]
